FAERS Safety Report 13739197 (Version 2)
Quarter: 2018Q2

REPORT INFORMATION
  Report Type: Report from Study
  Country: US (occurrence: US)
  Receive Date: 20170710
  Receipt Date: 20180627
  Transmission Date: 20180711
  Serious: No
  Sender: FDA-Public Use
  Company Number: US-SAOL THERAPEUTICS-2017SAO00251

PATIENT
  Sex: Female

DRUGS (30)
  1. COMPOUNDED BACLOFEN [Suspect]
     Active Substance: BACLOFEN
     Dosage: 400.4 ?G, \DAY MAX
     Route: 037
     Dates: start: 20160428
  2. COMPOUNDED BACLOFEN [Suspect]
     Active Substance: BACLOFEN
     Dosage: 461.99 ?G, \DAY
     Route: 037
     Dates: start: 20170105
  3. COMPOUNDED BACLOFEN [Suspect]
     Active Substance: BACLOFEN
     Dosage: 427.22 ?G, \DAY
     Route: 037
     Dates: start: 20170621
  4. COMPOUNDED BACLOFEN [Suspect]
     Active Substance: BACLOFEN
     Dosage: 519.69 ?G, \DAY MAX
     Route: 037
     Dates: start: 20170621
  5. BUPIVACAINE. [Suspect]
     Active Substance: BUPIVACAINE
     Dosage: 15.004 MG, \DAY
     Route: 037
     Dates: start: 20170105
  6. DILAUDID [Suspect]
     Active Substance: HYDROMORPHONE HYDROCHLORIDE
     Dosage: 0.924 MG, \DAY
     Route: 037
     Dates: start: 20170105
  7. DILAUDID [Suspect]
     Active Substance: HYDROMORPHONE HYDROCHLORIDE
     Dosage: 0.974 MG, \DAY MAX
     Route: 037
     Dates: start: 20170621
  8. BUPIVACAINE. [Suspect]
     Active Substance: BUPIVACAINE
     Dosage: 12.52 MG, \DAY
     Route: 037
     Dates: start: 20160428
  9. BUPIVACAINE. [Suspect]
     Active Substance: BUPIVACAINE
     Dosage: 16.016 MG, \DAY MAX
     Route: 037
     Dates: start: 20160428
  10. BUPIVACAINE. [Suspect]
     Active Substance: BUPIVACAINE
     Dosage: 16.021 MG, \DAY
     Route: 037
     Dates: start: 20170621
  11. COMPOUNDED BACLOFEN [Suspect]
     Active Substance: BACLOFEN
     Dosage: 340.01 ?G, \DAY
     Route: 037
     Dates: start: 20161123
  12. COMPOUNDED BACLOFEN [Suspect]
     Active Substance: BACLOFEN
     Dosage: 479.77 ?G, \DAY MAX
     Route: 037
     Dates: start: 20170510, end: 20170621
  13. DILAUDID [Suspect]
     Active Substance: HYDROMORPHONE HYDROCHLORIDE
     Dosage: 0.626 MG, \DAY
     Route: 037
     Dates: start: 20160428
  14. BUPIVACAINE. [Suspect]
     Active Substance: BUPIVACAINE
     Dosage: 13.600 MG, \DAY
     Route: 037
     Dates: start: 20161123
  15. BUPIVACAINE. [Suspect]
     Active Substance: BUPIVACAINE
     Dosage: 18.480 MG, \DAY
     Route: 037
     Dates: start: 20170105
  16. BUPIVACAINE. [Suspect]
     Active Substance: BUPIVACAINE
     Dosage: 15.721 MG, \DAY
     Route: 037
     Dates: start: 20170510, end: 20170621
  17. COMPOUNDED BACLOFEN [Suspect]
     Active Substance: BACLOFEN
     Dosage: 427.20 ?G, \DAY
     Route: 037
     Dates: start: 20161123
  18. DILAUDID [Suspect]
     Active Substance: HYDROMORPHONE HYDROCHLORIDE
     Dosage: 0.854 MG, \DAY
     Route: 037
     Dates: start: 20161123
  19. DILAUDID [Suspect]
     Active Substance: HYDROMORPHONE HYDROCHLORIDE
     Dosage: 0.786 MG, \DAY
     Route: 037
     Dates: start: 20170501, end: 20170621
  20. DILAUDID [Suspect]
     Active Substance: HYDROMORPHONE HYDROCHLORIDE
     Dosage: 0.959 MG, \DAY MAX
     Route: 037
     Dates: start: 20170501, end: 20170621
  21. DILAUDID [Suspect]
     Active Substance: HYDROMORPHONE HYDROCHLORIDE
     Dosage: 0.801 MG, \DAY
     Route: 037
     Dates: start: 20170621
  22. DILAUDID [Suspect]
     Active Substance: HYDROMORPHONE HYDROCHLORIDE
     Dosage: 0.680 MG, \DAY
     Route: 037
     Dates: start: 20161123
  23. BUPIVACAINE. [Suspect]
     Active Substance: BUPIVACAINE
     Dosage: 19.488 MG, \DAY MAX
     Route: 037
     Dates: start: 20170621
  24. COMPOUNDED BACLOFEN [Suspect]
     Active Substance: BACLOFEN
     Dosage: 375.09 ?G, \DAY
     Route: 037
     Dates: start: 20170105
  25. COMPOUNDED BACLOFEN [Suspect]
     Active Substance: BACLOFEN
     Dosage: 393.03 ?G, \DAY
     Route: 037
     Dates: start: 20170510, end: 20170621
  26. DILAUDID [Suspect]
     Active Substance: HYDROMORPHONE HYDROCHLORIDE
     Dosage: 0.8008 MG, \DAY MAX
     Route: 037
     Dates: start: 20160428
  27. COMPOUNDED BACLOFEN [Suspect]
     Active Substance: BACLOFEN
     Dosage: 312.99 ?G, \DAY
     Route: 037
     Dates: start: 20160428
  28. DILAUDID [Suspect]
     Active Substance: HYDROMORPHONE HYDROCHLORIDE
     Dosage: 0.7502 MG, \DAY
     Route: 037
     Dates: start: 20170105
  29. BUPIVACAINE. [Suspect]
     Active Substance: BUPIVACAINE
     Dosage: 17.088 MG, \DAY
     Route: 037
     Dates: start: 20161123
  30. BUPIVACAINE. [Suspect]
     Active Substance: BUPIVACAINE
     Dosage: 19.191 MG, \DAY MAX
     Route: 037
     Dates: start: 20170510, end: 20170621

REACTIONS (3)
  - Urinary retention [Recovered/Resolved]
  - Catheter site pain [Recovered/Resolved]
  - Implant site pain [Recovered/Resolved]

NARRATIVE: CASE EVENT DATE: 20161123
